FAERS Safety Report 16157352 (Version 3)
Quarter: 2019Q2

REPORT INFORMATION
  Report Type: Spontaneous
  Country: DE (occurrence: DE)
  Receive Date: 20190404
  Receipt Date: 20190603
  Transmission Date: 20190711
  Serious: Yes (Death, Hospitalization, Other)
  Sender: FDA-Public Use
  Company Number: DE-009507513-1903DEU013423

PATIENT
  Age: 74 Year
  Sex: Male

DRUGS (3)
  1. KEYTRUDA [Suspect]
     Active Substance: PEMBROLIZUMAB
     Indication: NON-SMALL CELL LUNG CANCER
     Dosage: 200 MILLIGRAM, CYCLICAL, 4 CYCLES WITH CONCOMITANT CARBOPLATIN AND PEMETREXED FOLLOWED BY 2 CYCLES C
     Dates: start: 201811, end: 20190304
  2. CARBOPLATIN. [Suspect]
     Active Substance: CARBOPLATIN
     Indication: NON-SMALL CELL LUNG CANCER
     Dosage: 4 CYCLES WITH COMBINATION OF PEMBROLIZUMAB(KEYTRUDA), CARBOPLATIN AND PEMETREXED DISODIUM/AUC 5
     Dates: start: 201811
  3. PEMETREXED DISODIUM [Suspect]
     Active Substance: PEMETREXED DISODIUM
     Indication: NON-SMALL CELL LUNG CANCER
     Dosage: 4 CYCLES CONCOMITANTLY WITH PEMBROLIZUMAB AND CARBOPLATIN, THEN 2 CYCLES WITH PEMBROLIZUMAB/500MG/M2
     Dates: start: 201811, end: 20190304

REACTIONS (8)
  - Cerebral artery thrombosis [Fatal]
  - Arteriosclerosis [Fatal]
  - Subendocardial ischaemia [Fatal]
  - Idiopathic pulmonary fibrosis [Fatal]
  - Interstitial lung disease [Unknown]
  - Staphylococcus test positive [Unknown]
  - Brain oedema [Fatal]
  - Malignant neoplasm progression [Fatal]

NARRATIVE: CASE EVENT DATE: 201903
